FAERS Safety Report 21161783 (Version 3)
Quarter: 2023Q2

REPORT INFORMATION
  Report Type: Report from Study
  Country: DE (occurrence: DE)
  Receive Date: 20220802
  Receipt Date: 20230508
  Transmission Date: 20230722
  Serious: Yes (Hospitalization, Other)
  Sender: FDA-Public Use
  Company Number: DE-MYLANLABS-2022M1080390

PATIENT
  Sex: Female

DRUGS (21)
  1. SIMPONI [Suspect]
     Active Substance: GOLIMUMAB
     Indication: Rheumatoid arthritis
     Dosage: 50 MILLIGRAM
     Route: 058
     Dates: start: 201609, end: 201707
  2. METHOTREXATE [Suspect]
     Active Substance: METHOTREXATE
     Indication: Rheumatoid arthritis
     Dosage: 7.5 MILLIGRAM
     Route: 065
     Dates: start: 20180924
  3. METHOTREXATE [Suspect]
     Active Substance: METHOTREXATE
     Dosage: 7.5 MILLIGRAM
     Route: 065
     Dates: start: 20180423
  4. METHOTREXATE [Suspect]
     Active Substance: METHOTREXATE
     Dosage: 7.5 MILLIGRAM
     Route: 065
     Dates: start: 20200128
  5. METHOTREXATE [Suspect]
     Active Substance: METHOTREXATE
     Dosage: 7.5 MILLIGRAM
     Route: 065
     Dates: start: 20191008
  6. METHOTREXATE [Suspect]
     Active Substance: METHOTREXATE
     Dosage: 7.5 MILLIGRAM (START DATE: 14-JUN-2021)
     Route: 065
  7. METHOTREXATE [Suspect]
     Active Substance: METHOTREXATE
     Dosage: 10 MILLIGRAM (START DATE: 15-OCT-2021)
     Route: 065
  8. METHOTREXATE [Suspect]
     Active Substance: METHOTREXATE
     Dosage: 7.5 MILLIGRAM
     Route: 065
     Dates: start: 20190411
  9. METHOTREXATE [Suspect]
     Active Substance: METHOTREXATE
     Dosage: 27.5 MILLIGRAM
     Route: 065
     Dates: start: 20160905
  10. METHOTREXATE [Suspect]
     Active Substance: METHOTREXATE
     Dosage: 27.5 MILLIGRAM
     Route: 065
     Dates: start: 20171016
  11. METHOTREXATE [Suspect]
     Active Substance: METHOTREXATE
     Dosage: 27.5 MILLIGRAM
     Route: 065
     Dates: start: 20170306
  12. METHOTREXATE [Suspect]
     Active Substance: METHOTREXATE
     Dosage: 27.5 MILLIGRAM
     Route: 065
     Dates: start: 20161206
  13. METHOTREXATE [Suspect]
     Active Substance: METHOTREXATE
     Dosage: 10 MILLIGRAM (START DATE: 17-AUG-2022)
     Route: 065
  14. METHOTREXATE [Suspect]
     Active Substance: METHOTREXATE
     Dosage: 10 MILLIGRAM (START DATE: 12-APR-2022)
     Route: 065
  15. LEFLUNOMIDE [Suspect]
     Active Substance: LEFLUNOMIDE
     Indication: Rheumatoid arthritis
     Dosage: 10 MILLIGRAM (START DATE: 14-JUN-2021)
     Route: 065
  16. LEFLUNOMIDE [Suspect]
     Active Substance: LEFLUNOMIDE
     Dosage: 10 MILLIGRAM
     Route: 065
     Dates: start: 20200128
  17. LEFLUNOMIDE [Suspect]
     Active Substance: LEFLUNOMIDE
     Dosage: 10 MILLIGRAM
     Route: 065
     Dates: start: 20191008
  18. LEFLUNOMIDE [Suspect]
     Active Substance: LEFLUNOMIDE
     Dosage: 10 MILLIGRAM (START DATE: 15-OCT-2021)
     Route: 065
  19. LEFLUNOMIDE [Suspect]
     Active Substance: LEFLUNOMIDE
     Dosage: 10 MILLIGRAM (START DATE: 17-AUG-2022)
     Route: 065
  20. LEFLUNOMIDE [Suspect]
     Active Substance: LEFLUNOMIDE
     Dosage: 10 MILLIGRAM (START DATE: 12-APR-2022)
     Route: 065
  21. ORENCIA [Suspect]
     Active Substance: ABATACEPT
     Indication: Rheumatoid arthritis
     Dosage: 125 MILLIGRAM
     Route: 065
     Dates: start: 201807, end: 201812

REACTIONS (23)
  - Gastric ulcer haemorrhage [Recovered/Resolved]
  - Bronchitis haemophilus [Unknown]
  - Chronic obstructive pulmonary disease [Recovered/Resolved]
  - Folate deficiency [Recovered/Resolved]
  - Gastrooesophageal reflux disease [Recovered/Resolved]
  - Pneumothorax spontaneous [Recovered/Resolved]
  - Gastroenteritis [Recovered/Resolved]
  - Pneumonia [Recovered/Resolved]
  - Gastritis [Recovered/Resolved]
  - Anaemia macrocytic [Recovered/Resolved]
  - Duodenitis [Recovered/Resolved]
  - Thrombocytopenia [Unknown]
  - Gastritis [Recovered/Resolved]
  - Hypokalaemia [Unknown]
  - Pneumonia [Recovered/Resolved]
  - Bronchitis haemophilus [Unknown]
  - Anaemia macrocytic [Recovered/Resolved]
  - Rheumatoid arthritis [Recovered/Resolved]
  - Osteomyelitis [Unknown]
  - Cataract [Not Recovered/Not Resolved]
  - Oral candidiasis [Recovered/Resolved]
  - Onychomycosis [Not Recovered/Not Resolved]
  - Escherichia urinary tract infection [Recovered/Resolved]

NARRATIVE: CASE EVENT DATE: 20200203
